FAERS Safety Report 12385976 (Version 1)
Quarter: 2016Q2

REPORT INFORMATION
  Report Type: Spontaneous
  Country: US (occurrence: US)
  Receive Date: 20160519
  Receipt Date: 20160519
  Transmission Date: 20160815
  Serious: No
  Sender: FDA-Public Use
  Company Number: US-ENDO PHARMACEUTICALS INC.-2015-003011

PATIENT
  Age: 53 Year
  Sex: Male
  Weight: 118.04 kg

DRUGS (2)
  1. LORAZEPAM TABLETS 2MG [Suspect]
     Active Substance: LORAZEPAM
     Indication: ANXIETY
     Route: 060
     Dates: start: 20150821, end: 201509
  2. LORAZEPAM TABLETS 2MG [Suspect]
     Active Substance: LORAZEPAM
     Indication: PANIC ATTACK

REACTIONS (5)
  - Retching [Recovered/Resolved]
  - Incorrect route of drug administration [Recovered/Resolved]
  - Abdominal discomfort [Recovered/Resolved]
  - Nausea [Recovered/Resolved]
  - Drug ineffective [Unknown]

NARRATIVE: CASE EVENT DATE: 20150821
